FAERS Safety Report 9979744 (Version 1)
Quarter: 2014Q1

REPORT INFORMATION
  Report Type: Report from Study
  Country: US (occurrence: US)
  Receive Date: 20140306
  Receipt Date: 20140306
  Transmission Date: 20141002
  Serious: No
  Sender: FDA-Public Use
  Company Number: US-ABBVIE-13P-163-1172619-00

PATIENT
  Age: 41 Year
  Sex: Male
  Weight: 83.99 kg

DRUGS (5)
  1. HUMIRA [Suspect]
     Indication: PSORIASIS
     Route: 058
     Dates: start: 2009, end: 2009
  2. HUMIRA [Suspect]
     Dosage: 1 WEEK AFTER INITIAL DOSE
     Route: 058
     Dates: start: 2009, end: 201211
  3. HUMIRA [Suspect]
     Route: 058
     Dates: start: 201212, end: 201301
  4. HUMIRA [Suspect]
     Route: 058
     Dates: start: 201302
  5. POTASSIUM GLUCONATE [Concomitant]
     Indication: PRODUCT USED FOR UNKNOWN INDICATION

REACTIONS (6)
  - Gastric ulcer [Recovered/Resolved]
  - Testicular pain [Recovered/Resolved]
  - Epididymitis [Recovered/Resolved]
  - Dyspepsia [Recovered/Resolved]
  - Abdominal pain upper [Recovered/Resolved]
  - Psoriasis [Recovering/Resolving]
